FAERS Safety Report 17560280 (Version 1)
Quarter: 2020Q1

REPORT INFORMATION
  Report Type: Spontaneous
  Country: US (occurrence: US)
  Receive Date: 20200318
  Receipt Date: 20200318
  Transmission Date: 20200409
  Serious: Yes (Life-Threatening, Hospitalization, Other)
  Sender: FDA-Public Use
  Company Number: None

PATIENT
  Age: 78 Year
  Sex: Male
  Weight: 111.6 kg

DRUGS (1)
  1. BOSENTAN TABLETS 125 MG [Suspect]
     Active Substance: BOSENTAN
     Indication: PULMONARY HYPERTENSION
     Dosage: ?          QUANTITY:60 TABLET(S);?
     Route: 048
     Dates: start: 20190722

REACTIONS (3)
  - Dyspnoea [None]
  - Pneumothorax [None]
  - Back pain [None]

NARRATIVE: CASE EVENT DATE: 20191205
